FAERS Safety Report 20222837 (Version 1)
Quarter: 2021Q4

REPORT INFORMATION
  Report Type: Spontaneous
  Country: RS (occurrence: RS)
  Receive Date: 20211223
  Receipt Date: 20211223
  Transmission Date: 20220303
  Serious: Yes (Death)
  Sender: FDA-Public Use
  Company Number: RS-PFIZER INC-202101781188

PATIENT
  Age: 40 Year
  Sex: Male

DRUGS (1)
  1. TAFAMIDIS MEGLUMINE [Suspect]
     Active Substance: TAFAMIDIS MEGLUMINE
     Dosage: UNK

REACTIONS (1)
  - Death [Fatal]
